FAERS Safety Report 8621631-9 (Version None)
Quarter: 2012Q3

REPORT INFORMATION
  Report Type: 
  Country: None (occurrence: None)
  Receive Date: 20120820
  Receipt Date: 20120820
  Transmission Date: 20120928
  Serious: Yes (Other)
  Sender: FDA-Public Use
  Company Number: None

PATIENT

DRUGS (1)
  1. SINGULAIR [Suspect]
     Indication: MULTIPLE ALLERGIES
     Dosage: 1 CHEWABLE TAB DAILY PO
     Route: 048
     Dates: start: 20120514, end: 20120815

REACTIONS (3)
  - SUICIDAL IDEATION [None]
  - PSYCHOMOTOR HYPERACTIVITY [None]
  - AGGRESSION [None]
